FAERS Safety Report 4705391-X (Version None)
Quarter: 2005Q3

REPORT INFORMATION
  Report Type: 
  Country: None (occurrence: None)
  Receive Date: 20050701
  Receipt Date: 20050627
  Transmission Date: 20060218
  Serious: Yes (Hospitalization)
  Sender: FDA-Public Use
  Company Number: US-GLAXOSMITHKLINE-A0564307A

PATIENT
  Sex: Male

DRUGS (3)
  1. COREG [Suspect]
     Indication: CARDIAC FAILURE CONGESTIVE
     Route: 048
  2. ACE INHIBITOR [Concomitant]
  3. PERCOCET [Concomitant]

REACTIONS (2)
  - HYPOTENSION [None]
  - PAIN IN EXTREMITY [None]
